FAERS Safety Report 9551757 (Version 1)
Quarter: 2013Q3

REPORT INFORMATION
  Report Type: Report from Study
  Country: US (occurrence: US)
  Receive Date: 20130925
  Receipt Date: 20130925
  Transmission Date: 20140515
  Serious: Yes (Hospitalization)
  Sender: FDA-Public Use
  Company Number: US-JNJFOC-20130909960

PATIENT
  Age: 14 Year
  Sex: Female
  Weight: 42.9 kg

DRUGS (21)
  1. REMICADE [Suspect]
     Indication: CROHN^S DISEASE
     Route: 042
     Dates: start: 201103, end: 20130307
  2. 5-ASA [Concomitant]
     Route: 048
  3. PREDNISONE [Concomitant]
     Route: 065
     Dates: start: 20130826
  4. METHOTREXATE [Concomitant]
     Route: 065
     Dates: start: 20130826
  5. ACETAMINOPHEN [Concomitant]
     Route: 065
  6. CLOBETASOL [Concomitant]
     Route: 061
  7. NEXIUM [Concomitant]
     Route: 065
  8. FOLIC ACID [Concomitant]
     Route: 065
  9. INTUNIV [Concomitant]
     Route: 065
  10. MELATONIN [Concomitant]
     Route: 065
  11. MOMETASONE [Concomitant]
     Route: 061
  12. MULTIVITAMINS [Concomitant]
     Route: 065
  13. BACTROBAN [Concomitant]
     Route: 065
  14. ZOFRAN [Concomitant]
     Route: 065
  15. ZOLOFT [Concomitant]
     Route: 065
  16. TEMAZEPAM [Concomitant]
     Route: 065
  17. DOVONEX [Concomitant]
     Route: 061
  18. AMITRIPTYLINE [Concomitant]
     Route: 065
  19. PROPRANOLOL [Concomitant]
     Route: 065
  20. CALCIUM [Concomitant]
     Route: 065
  21. NIZORAL [Concomitant]
     Route: 061

REACTIONS (1)
  - Crohn^s disease [Recovered/Resolved]
